FAERS Safety Report 22258029 (Version 1)
Quarter: 2023Q2

REPORT INFORMATION
  Report Type: Other
  Country: CN (occurrence: CN)
  Receive Date: 20230427
  Receipt Date: 20230427
  Transmission Date: 20230721
  Serious: Yes (Hospitalization, Other)
  Sender: FDA-Public Use
  Company Number: CN-Bion-011504

PATIENT

DRUGS (7)
  1. IBUPROFEN [Suspect]
     Active Substance: IBUPROFEN
     Indication: Maintenance of anaesthesia
     Route: 054
  2. DEXMEDETOMIDINE [Concomitant]
     Active Substance: DEXMEDETOMIDINE
     Indication: Maintenance of anaesthesia
  3. PROPOFOL [Concomitant]
     Active Substance: PROPOFOL
     Indication: Maintenance of anaesthesia
  4. FENTANYL [Concomitant]
     Active Substance: FENTANYL
     Indication: Maintenance of anaesthesia
  5. REMIFENTANIL [Concomitant]
     Active Substance: REMIFENTANIL
     Indication: Maintenance of anaesthesia
     Route: 042
  6. SEVOFLURANE [Concomitant]
     Active Substance: SEVOFLURANE
     Indication: Maintenance of anaesthesia
  7. LIDOCAINE\PRILOCAINE [Concomitant]
     Active Substance: LIDOCAINE\PRILOCAINE
     Indication: Maintenance of anaesthesia
     Dosage: 0.15 G/CM2

REACTIONS (1)
  - Respiratory depression [Unknown]
